FAERS Safety Report 9356483 (Version 1)
Quarter: 2013Q2

REPORT INFORMATION
  Report Type: Not Available
  Country: FR (occurrence: FR)
  Receive Date: 20130619
  Receipt Date: 20130619
  Transmission Date: 20140414
  Serious: Yes (Hospitalization, Congenital Anomaly)
  Sender: FDA-Public Use
  Company Number: FR-RB-1171-2004

PATIENT
  Age: 0 Year
  Sex: Female
  Weight: 3 kg

DRUGS (5)
  1. SUBUTEX [Suspect]
     Indication: DRUG DEPENDENCE
     Route: 064
     Dates: end: 20031111
  2. BROMAZEPAM [Suspect]
     Indication: PRODUCT USED FOR UNKNOWN INDICATION
     Dosage: 6-9 MILLIGRAMS
     Route: 064
     Dates: end: 20031111
  3. TERCIAN [Concomitant]
     Indication: PRODUCT USED FOR UNKNOWN INDICATION
     Route: 064
  4. NORSET [Concomitant]
     Indication: PRODUCT USED FOR UNKNOWN INDICATION
     Route: 064
  5. VENTOLIN [Concomitant]
     Indication: PRODUCT USED FOR UNKNOWN INDICATION
     Dosage: UNKNOWN DOSING DETAILS
     Route: 064

REACTIONS (4)
  - Pulmonary artery stenosis congenital [Unknown]
  - Drug withdrawal syndrome neonatal [Unknown]
  - Weight decrease neonatal [Recovered/Resolved]
  - Foetal exposure during pregnancy [Recovered/Resolved]
